FAERS Safety Report 8835078 (Version 7)
Quarter: 2014Q3

REPORT INFORMATION
  Report Type: Spontaneous
  Country: US (occurrence: US)
  Receive Date: 20121010
  Receipt Date: 20140910
  Transmission Date: 20150326
  Serious: Yes (Hospitalization, Disabling, Other)
  Sender: FDA-Public Use
  Company Number: US-009507513-1210USA003166

PATIENT
  Sex: Female
  Weight: 64.4 kg

DRUGS (3)
  1. ALENDRONATE SODIUM. [Suspect]
     Active Substance: ALENDRONATE SODIUM
     Dosage: 70 MG, QW
     Route: 048
     Dates: start: 20080224, end: 20090716
  2. FOSAMAX [Suspect]
     Active Substance: ALENDRONATE SODIUM
     Indication: OSTEOPOROSIS PROPHYLAXIS
     Dosage: 10 MG, QD
     Route: 048
     Dates: start: 20021017, end: 20060206
  3. FOSAMAX [Suspect]
     Active Substance: ALENDRONATE SODIUM
     Indication: OSTEOPENIA
     Dosage: 70 MG, QW
     Route: 048
     Dates: start: 20020205, end: 20090129

REACTIONS (44)
  - Mental status changes [Unknown]
  - Spinal laminectomy [Unknown]
  - Femur fracture [Recovered/Resolved]
  - Sleep disorder [Unknown]
  - Tachycardia [Unknown]
  - Diabetes mellitus [Unknown]
  - Gouty tophus [Unknown]
  - Memory impairment [Unknown]
  - Joint manipulation [Unknown]
  - Rib fracture [Unknown]
  - Chronic obstructive pulmonary disease [Not Recovered/Not Resolved]
  - Musculoskeletal pain [Not Recovered/Not Resolved]
  - Intramedullary rod insertion [Recovering/Resolving]
  - Fatigue [Unknown]
  - Anxiety [Unknown]
  - Increased tendency to bruise [Unknown]
  - Stomatitis [Unknown]
  - Rotator cuff repair [Unknown]
  - Pneumonia bacterial [Recovered/Resolved]
  - Low turnover osteopathy [Unknown]
  - Localised infection [Unknown]
  - Mood altered [Unknown]
  - Feeling jittery [Unknown]
  - Fall [Recovering/Resolving]
  - Dehydration [Unknown]
  - Myocardial infarction [Unknown]
  - Fracture nonunion [Recovered/Resolved]
  - Adverse event [Unknown]
  - Temporal arteritis [Unknown]
  - Insomnia [Unknown]
  - Musculoskeletal pain [Unknown]
  - Diabetes mellitus [Unknown]
  - Nausea [Unknown]
  - Arthritis [Unknown]
  - Adverse event [Unknown]
  - Incision site abscess [Unknown]
  - Rotator cuff syndrome [Unknown]
  - Liver function test abnormal [Unknown]
  - Fall [Unknown]
  - Intervertebral disc degeneration [Unknown]
  - Haematocrit decreased [Recovering/Resolving]
  - Renal failure acute [Unknown]
  - Mitral valve prolapse [Unknown]
  - Lumbar radiculopathy [Recovered/Resolved]

NARRATIVE: CASE EVENT DATE: 2005
